FAERS Safety Report 6434134-7 (Version None)
Quarter: 2009Q4

REPORT INFORMATION
  Report Type: 
  Country: None (occurrence: None)
  Receive Date: 20091110
  Receipt Date: 20080925
  Transmission Date: 20100525
  Serious: No
  Sender: FDA-Public Use
  Company Number: US-ASTRAZENECA-2009UW15133

PATIENT
  Age: 45 Year
  Sex: Male

DRUGS (2)
  1. PRILOSEC OTC [Suspect]
     Indication: DYSPEPSIA
     Dosage: UNK DOSE, UNK FREQ FOR 25 DAYS
     Route: 048
     Dates: start: 20080825, end: 20080920
  2. CLARITIN [Concomitant]
     Dosage: UNKNOWN

REACTIONS (3)
  - EXPIRED DRUG ADMINISTERED [None]
  - HEADACHE [None]
  - MIGRAINE [None]
